FAERS Safety Report 4829544-5 (Version None)
Quarter: 2005Q4

REPORT INFORMATION
  Report Type: 
  Country: None (occurrence: None)
  Receive Date: 20051116
  Receipt Date: 20051108
  Transmission Date: 20060501
  Serious: Yes (Other)
  Sender: FDA-Public Use
  Company Number: PHBS2005SE16437

PATIENT
  Age: 87 Year

DRUGS (7)
  1. HYDERGIN [Suspect]
     Dosage: 3 MG/DAY
     Route: 048
     Dates: start: 20050201, end: 20050401
  2. NITROLINGUAL [Concomitant]
  3. METOPROLOL SUCCINATE [Concomitant]
     Route: 048
  4. TROMBYL [Concomitant]
     Route: 048
  5. PROSCAR [Concomitant]
     Route: 048
  6. IMDUR [Concomitant]
     Route: 048
  7. TRIOBE [Concomitant]
     Route: 048

REACTIONS (3)
  - MALIGNANT MELANOMA [None]
  - PROSTATIC SPECIFIC ANTIGEN INCREASED [None]
  - RASH [None]
